FAERS Safety Report 4482526-8 (Version None)
Quarter: 2004Q4

REPORT INFORMATION
  Report Type: 
  Country: None (occurrence: None)
  Receive Date: 20041022
  Receipt Date: 20040812
  Transmission Date: 20050328
  Serious: No
  Sender: FDA-Public Use
  Company Number: US-GLAXOSMITHKLINE-A0521989A

PATIENT
  Sex: Male

DRUGS (13)
  1. LEXIVA [Suspect]
     Indication: HIV INFECTION
     Dosage: 2TAB TWICE PER DAY
     Route: 048
     Dates: start: 20040101
  2. TRIZIVIR [Suspect]
     Indication: HIV INFECTION
     Dosage: 1TAB TWICE PER DAY
     Route: 048
     Dates: start: 20020501
  3. KALETRA [Concomitant]
  4. MEPRON [Concomitant]
  5. HYDROXYZINE PAMOATE [Concomitant]
  6. AMBIEN [Concomitant]
  7. DIFLUCAN [Concomitant]
  8. BETA CAROTENE [Concomitant]
  9. MULTI-VITAMIN [Concomitant]
  10. DOXEPIN HYDROCHLORIDE [Concomitant]
  11. ENTERAL PRODUCT (UNSPECIFIED) [Concomitant]
  12. NEURONTIN [Concomitant]
  13. SANDOSTATIN [Concomitant]

REACTIONS (2)
  - DIARRHOEA [None]
  - STOOL ANALYSIS ABNORMAL [None]
